FAERS Safety Report 8501082-8 (Version None)
Quarter: 2012Q3

REPORT INFORMATION
  Report Type: 
  Country: None (occurrence: None)
  Receive Date: 20120710
  Receipt Date: 20120702
  Transmission Date: 20120928
  Serious: Yes (Hospitalization, Other)
  Sender: FDA-Public Use
  Company Number: JP-VERTEX PHARMACEUTICALS INC.-AE-2012-006002

PATIENT
  Age: 63 Year
  Sex: Male

DRUGS (5)
  1. PEG-INTRON [Concomitant]
     Indication: HEPATITIS C
     Route: 058
     Dates: start: 20120316, end: 20120419
  2. TELAVIC (TELAPREVIR) [Suspect]
     Indication: HEPATITIS C
     Route: 048
     Dates: start: 20120316, end: 20120414
  3. REBETOL [Concomitant]
     Indication: HEPATITIS C
     Route: 048
     Dates: start: 20120316, end: 20120328
  4. REBETOL [Concomitant]
     Route: 048
     Dates: start: 20120402, end: 20120419
  5. REBETOL [Concomitant]
     Route: 048
     Dates: start: 20120329, end: 20120401

REACTIONS (2)
  - BLOOD CREATININE INCREASED [None]
  - DRUG ERUPTION [None]
